FAERS Safety Report 8030423-3 (Version None)
Quarter: 2012Q1

REPORT INFORMATION
  Report Type: 
  Country: None (occurrence: None)
  Receive Date: 20120109
  Receipt Date: 20120109
  Transmission Date: 20120608
  Serious: Yes (Hospitalization)
  Sender: FDA-Public Use
  Company Number: None

PATIENT
  Age: 14 Year
  Sex: Female
  Weight: 49.895 kg

DRUGS (1)
  1. FOCALIN XR [Suspect]
     Indication: ATTENTION DEFICIT/HYPERACTIVITY DISORDER
     Dates: start: 20120103, end: 20120104

REACTIONS (11)
  - AGGRESSION [None]
  - CONFUSIONAL STATE [None]
  - ABNORMAL BEHAVIOUR [None]
  - MOOD ALTERED [None]
  - HEADACHE [None]
  - DECREASED APPETITE [None]
  - SUICIDE ATTEMPT [None]
  - GASTRIC DISORDER [None]
  - DEPRESSION [None]
  - DEPRESSED MOOD [None]
  - INSOMNIA [None]
